FAERS Safety Report 5899264-7 (Version None)
Quarter: 2008Q3

REPORT INFORMATION
  Report Type: 
  Country: None (occurrence: None)
  Receive Date: 20080828
  Receipt Date: 20071116
  Transmission Date: 20090109
  Serious: Yes (Hospitalization)
  Sender: FDA-Public Use
  Company Number: CIP07002400

PATIENT
  Age: 66 Year
  Sex: Female
  Weight: 61.2 kg

DRUGS (5)
  1. ASACOL [Suspect]
     Indication: COLITIS ULCERATIVE
     Dosage: ORAL
     Route: 048
  2. REMICADE [Suspect]
     Indication: COLITIS ULCERATIVE
     Dosage: IV NOS
     Route: 042
     Dates: start: 20070101, end: 20070101
  3. REMICADE [Suspect]
     Indication: COLITIS ULCERATIVE
     Dosage: IV NOS
     Route: 042
     Dates: start: 20070903, end: 20070903
  4. REMICADE [Suspect]
     Indication: COLITIS ULCERATIVE
     Dosage: IV NOS
     Route: 042
     Dates: start: 20070401
  5. COLAZAL [Suspect]
     Indication: COLITIS ULCERATIVE
     Dates: start: 20070101

REACTIONS (3)
  - BURNING SENSATION [None]
  - COLITIS ULCERATIVE [None]
  - RASH [None]
